FAERS Safety Report 7674173-1 (Version None)
Quarter: 2011Q3

REPORT INFORMATION
  Report Type: 
  Country: None (occurrence: None)
  Receive Date: 20110810
  Receipt Date: 20110801
  Transmission Date: 20111222
  Serious: Yes (Other)
  Sender: FDA-Public Use
  Company Number: US-JNJFOC-20110802659

PATIENT
  Sex: Female
  Weight: 83.92 kg

DRUGS (1)
  1. ORTHO TRI-CYCLEN [Suspect]
     Indication: CONTRACEPTION
     Route: 048
     Dates: start: 20110501

REACTIONS (3)
  - DIABETIC FOOT [None]
  - MENSTRUATION DELAYED [None]
  - WEIGHT INCREASED [None]
